FAERS Safety Report 9484253 (Version 2)
Quarter: 2013Q3

REPORT INFORMATION
  Report Type: Spontaneous
  Country: CA (occurrence: CA)
  Receive Date: 20130828
  Receipt Date: 20130828
  Transmission Date: 20140515
  Serious: Yes (Other)
  Sender: FDA-Public Use
  Company Number: CA-AMGEN-KDL367895

PATIENT
  Age: 54 Year
  Sex: Female
  Weight: 72.6 kg

DRUGS (1)
  1. ENBREL [Suspect]
     Indication: RHEUMATOID ARTHRITIS
     Dosage: UNK UNK, QWK
     Route: 058
     Dates: start: 20090821, end: 20100128

REACTIONS (14)
  - Intestinal obstruction [Recovered/Resolved]
  - Facial neuralgia [Not Recovered/Not Resolved]
  - Dyspnoea [Unknown]
  - Feeling hot [Unknown]
  - Hyperhidrosis [Unknown]
  - Sleep disorder [Unknown]
  - Feeling cold [Not Recovered/Not Resolved]
  - Oropharyngeal pain [Unknown]
  - Burning sensation [Recovered/Resolved]
  - Dyspepsia [Recovering/Resolving]
  - Chest pain [Unknown]
  - Headache [Unknown]
  - Injection site pain [Unknown]
  - Injection site erythema [Unknown]
